FAERS Safety Report 9847179 (Version 2)
Quarter: 2014Q1

REPORT INFORMATION
  Report Type: Report from Study
  Country: US (occurrence: US)
  Receive Date: 20140127
  Receipt Date: 20140127
  Transmission Date: 20141002
  Serious: Yes (Other)
  Sender: FDA-Public Use
  Company Number: US-ABBVIE-14P-163-1189865-00

PATIENT
  Age: 41 Year
  Sex: Female

DRUGS (2)
  1. HUMIRA [Suspect]
     Indication: CROHN^S DISEASE
  2. ASACOL [Concomitant]
     Indication: CROHN^S DISEASE
     Route: 048

REACTIONS (11)
  - Fistula [Unknown]
  - Fistula [Unknown]
  - Fistula [Unknown]
  - Intestinal resection [Unknown]
  - Injection site pain [Unknown]
  - Injection site bruising [Recovering/Resolving]
  - Injection site pain [Recovering/Resolving]
  - Nasopharyngitis [Unknown]
  - Epistaxis [Unknown]
  - Respiratory tract congestion [Unknown]
  - Oropharyngeal pain [Unknown]
